FAERS Safety Report 15570738 (Version 1)
Quarter: 2018Q4

REPORT INFORMATION
  Report Type: Spontaneous
  Country: US (occurrence: US)
  Receive Date: 20181031
  Receipt Date: 20181031
  Transmission Date: 20190205
  Serious: Yes (Hospitalization)
  Sender: FDA-Public Use
  Company Number: None

PATIENT
  Sex: Female

DRUGS (17)
  1. CYANOCOBALAM [Concomitant]
     Active Substance: CYANOCOBALAMIN
  2. OXYCODONE [Concomitant]
     Active Substance: OXYCODONE
  3. OXYCODONE AND ACETAMINOPHEN [Concomitant]
     Active Substance: ACETAMINOPHEN\OXYCODONE HYDROCHLORIDE
  4. ALPRAZOLAM. [Concomitant]
     Active Substance: ALPRAZOLAM
  5. GABAPENTIN. [Concomitant]
     Active Substance: GABAPENTIN
  6. LEFLUNOMIDE. [Concomitant]
     Active Substance: LEFLUNOMIDE
  7. FOLIC ACID. [Concomitant]
     Active Substance: FOLIC ACID
  8. LEVORPHANOL [Concomitant]
     Active Substance: LEVORPHANOL
  9. CARISOPRODOL. [Concomitant]
     Active Substance: CARISOPRODOL
  10. DULOXETINE. [Concomitant]
     Active Substance: DULOXETINE
  11. METOPROLOL. [Concomitant]
     Active Substance: METOPROLOL
  12. MORPHINE [Concomitant]
     Active Substance: MORPHINE
  13. SUCRALFATE. [Concomitant]
     Active Substance: SUCRALFATE
  14. METHOTREXATE. [Suspect]
     Active Substance: METHOTREXATE
     Indication: PSORIATIC ARTHROPATHY
     Dosage: ?          OTHER FREQUENCY:UNK;?
  15. IBU [Concomitant]
     Active Substance: IBUPROFEN
  16. OXYCONTIN [Concomitant]
     Active Substance: OXYCODONE HYDROCHLORIDE
  17. VENTOLIN HFA AER [Concomitant]

REACTIONS (3)
  - Inflammation [None]
  - Product availability issue [None]
  - Therapy cessation [None]
